FAERS Safety Report 13274072 (Version 2)
Quarter: 2017Q1

REPORT INFORMATION
  Report Type: Spontaneous
  Country: KR (occurrence: KR)
  Receive Date: 20170227
  Receipt Date: 20170309
  Transmission Date: 20170428
  Serious: Yes (Death, Hospitalization, Other)
  Sender: FDA-Public Use
  Company Number: KR-JNJFOC-20170223981

PATIENT
  Age: 64 Year
  Sex: Female
  Weight: 53 kg

DRUGS (5)
  1. XARELTO [Suspect]
     Active Substance: RIVAROXABAN
     Indication: PRODUCT USED FOR UNKNOWN INDICATION
     Dosage: DOSAGE: UNKNOWN
     Route: 048
     Dates: start: 20170117
  2. GODEX [Concomitant]
     Dosage: DOSAGE: UNKNOWN
     Route: 065
     Dates: start: 20151109
  3. URSA [Concomitant]
     Dosage: DOSAGE: UNKNOWN
     Route: 065
     Dates: start: 20150312
  4. DURICEF [Concomitant]
     Active Substance: CEFADROXIL
     Dosage: DOSAGE: UNKNOWN
     Route: 065
     Dates: start: 20150702
  5. MYPOL [Concomitant]
     Dosage: DOSAGE: UNKNOWN
     Route: 065
     Dates: start: 20150331

REACTIONS (2)
  - Pulmonary haemorrhage [Fatal]
  - Haemoptysis [Unknown]

NARRATIVE: CASE EVENT DATE: 201701
